FAERS Safety Report 18820083 (Version 2)
Quarter: 2021Q1

REPORT INFORMATION
  Report Type: Spontaneous
  Country: PT (occurrence: PT)
  Receive Date: 20210202
  Receipt Date: 20210222
  Transmission Date: 20210419
  Serious: Yes (Other)
  Sender: FDA-Public Use
  Company Number: PT-AUROBINDO-AUR-APL-2021-003318

PATIENT
  Age: 80 Year
  Sex: Female
  Weight: 60 kg

DRUGS (8)
  1. TRITICUM AC [Concomitant]
     Indication: SOMNOLENCE
  2. TRITICUM AC [Concomitant]
     Indication: ANXIETY
     Dosage: 50 MILLIGRAM, ONCE A DAY (150 MG PILL?1/3 PILL PER NIGHT)
     Route: 048
  3. XANAX [Concomitant]
     Active Substance: ALPRAZOLAM
     Indication: SOMNOLENCE
  4. QUETIAPINE GENERIS 25 MG FILM?COATED TABLET [Suspect]
     Active Substance: QUETIAPINE
     Indication: ANXIETY
     Dosage: 25 MILLIGRAM, ONCE A DAY
     Route: 048
     Dates: start: 202101
  5. APROVEL [Concomitant]
     Active Substance: IRBESARTAN
     Indication: HYPERTENSION
     Dosage: 150 MG OR 300 MG, ONCE A DAY
     Route: 048
  6. ZANICOR [Concomitant]
     Indication: HYPERTENSION
     Dosage: 10 MILLIGRAM, ONCE A DAY
     Route: 048
  7. AERO?OM [Concomitant]
     Indication: FLATULENCE
     Dosage: TAKEN AS NEEDED
     Route: 048
  8. XANAX [Concomitant]
     Active Substance: ALPRAZOLAM
     Indication: ANXIETY
     Dosage: 0.5 MILLIGRAM, TWO TIMES A DAY
     Route: 048

REACTIONS (6)
  - Hallucination, auditory [Recovered/Resolved]
  - Feeling abnormal [Recovered/Resolved]
  - Malaise [Recovered/Resolved]
  - Off label use [Unknown]
  - Heart rate increased [Recovered/Resolved]
  - Headache [Recovered/Resolved]

NARRATIVE: CASE EVENT DATE: 202101
